FAERS Safety Report 9063737 (Version 2)
Quarter: 2013Q1

REPORT INFORMATION
  Report Type: Other
  Country: US (occurrence: US)
  Receive Date: 20130115
  Receipt Date: 20130115
  Transmission Date: 20140127
  Serious: Yes (Other)
  Sender: FDA-Public Use
  Company Number: US-RB-046094-12

PATIENT
  Sex: 0

DRUGS (1)
  1. BUPRENORPHINE [Suspect]
     Indication: DRUG WITHDRAWAL SYNDROME NEONATAL
     Dosage: DOSING DETAILS UNKNOWN
     Route: 060

REACTIONS (2)
  - Cytomegalovirus infection [Unknown]
  - Off label use [Recovered/Resolved]
